FAERS Safety Report 5063848-9 (Version None)
Quarter: 2006Q3

REPORT INFORMATION
  Report Type: 
  Country: None (occurrence: None)
  Receive Date: 20060726
  Receipt Date: 20060726
  Transmission Date: 20061208
  Serious: Yes (Life-Threatening)
  Sender: FDA-Public Use
  Company Number: None

PATIENT
  Age: 85 Year
  Sex: Female
  Weight: 81.8 kg

DRUGS (11)
  1. IBUTILIDE 0.4 MG INJECTION (FROM 1 MG /10 ML VIAL PFIZER) [Suspect]
     Indication: ATRIAL FLUTTER
     Dosage: 0.4 MG X1 IV
     Route: 042
     Dates: start: 20060720
  2. SPIRONOLACTONE [Concomitant]
  3. ESOMEPRAZOLE MAGNESIUM [Concomitant]
  4. ATORVASTATIN CALCIUM [Concomitant]
  5. MULTI-VITAMIN [Concomitant]
  6. IRBESARTAN [Concomitant]
  7. FUROSEMIDE [Concomitant]
  8. WARFARIN SODIUM [Concomitant]
  9. POTASSIUM [Concomitant]
  10. ACETAMINOPHEN [Concomitant]
  11. CETYLPYRIDIUM LOZENGES [Concomitant]

REACTIONS (7)
  - ATRIAL FLUTTER [None]
  - ELECTROCARDIOGRAM QT CORRECTED INTERVAL PROLONGED [None]
  - HYPERTENSION [None]
  - PULMONARY OEDEMA [None]
  - TORSADE DE POINTES [None]
  - TROPONIN INCREASED [None]
  - VENTRICULAR TACHYCARDIA [None]
